FAERS Safety Report 6675230-9 (Version None)
Quarter: 2010Q2

REPORT INFORMATION
  Report Type: 
  Country: None (occurrence: None)
  Receive Date: 20100409
  Receipt Date: 20100331
  Transmission Date: 20101027
  Serious: Yes (Other)
  Sender: FDA-Public Use
  Company Number: US-AMGEN-QUU400500

PATIENT
  Sex: Female

DRUGS (1)
  1. NPLATE [Suspect]
     Indication: IDIOPATHIC THROMBOCYTOPENIC PURPURA
     Dates: start: 20081118, end: 20090227

REACTIONS (8)
  - ACUTE MYELOID LEUKAEMIA [None]
  - ANAEMIA [None]
  - DRUG INEFFECTIVE [None]
  - EPISTAXIS [None]
  - MYELODYSPLASTIC SYNDROME [None]
  - PERIPHERAL T-CELL LYMPHOMA UNSPECIFIED RECURRENT [None]
  - THERAPEUTIC RESPONSE DECREASED [None]
  - THROMBOCYTOPENIA [None]
